FAERS Safety Report 14114067 (Version 2)
Quarter: 2018Q1

REPORT INFORMATION
  Report Type: Spontaneous
  Country: IT (occurrence: IT)
  Receive Date: 20171023
  Receipt Date: 20180305
  Transmission Date: 20180508
  Serious: Yes (Life-Threatening)
  Sender: FDA-Public Use
  Company Number: IT-ACCORD-060062

PATIENT
  Age: 79 Year
  Sex: Male

DRUGS (3)
  1. FLUOROURACIL ACCORD [Suspect]
     Active Substance: FLUOROURACIL
     Indication: GASTROINTESTINAL CARCINOMA
     Dosage: STRENGTH: 50 MG/ML
     Route: 042
     Dates: start: 20170621, end: 20170920
  2. CISPLATIN ACCORD [Suspect]
     Active Substance: CISPLATIN
     Indication: GASTROINTESTINAL CARCINOMA
     Dosage: STRENGTH: 1 MG/ML
     Route: 042
     Dates: start: 20170621, end: 20170920
  3. HERCEPTIN [Suspect]
     Active Substance: TRASTUZUMAB
     Indication: GASTROINTESTINAL CARCINOMA
     Dosage: STRENGTH: 150 MG?NOT REINTRODUCED?MAH: ROCHE
     Route: 042
     Dates: start: 20170621, end: 20170920

REACTIONS (4)
  - Respiratory failure [Recovering/Resolving]
  - Troponin increased [Recovering/Resolving]
  - Off label use [Unknown]
  - Cardiac failure [Recovering/Resolving]

NARRATIVE: CASE EVENT DATE: 20170921
